FAERS Safety Report 4422816-8 (Version None)
Quarter: 2004Q3

REPORT INFORMATION
  Report Type: 
  Country: None (occurrence: None)
  Receive Date: 20040810
  Receipt Date: 20040810
  Transmission Date: 20050211
  Serious: Yes (Other)
  Sender: FDA-Public Use
  Company Number: None

PATIENT
  Age: 58 Year

DRUGS (2)
  1. ZAROXOLYN [Suspect]
     Indication: COR PULMONALE
     Dosage: 1 QD AND OR 1 QOD LONG TERM
  2. ZAROXOLYN [Suspect]
     Indication: OEDEMA
     Dosage: 1 QD AND OR 1 QOD LONG TERM

REACTIONS (2)
  - PHARMACEUTICAL PRODUCT COMPLAINT [None]
  - PRURITUS [None]
